FAERS Safety Report 18771303 (Version 6)
Quarter: 2021Q4

REPORT INFORMATION
  Report Type: Report from Study
  Country: US (occurrence: US)
  Receive Date: 20210122
  Receipt Date: 20211122
  Transmission Date: 20220303
  Serious: Yes (Death, Hospitalization, Other)
  Sender: FDA-Public Use
  Company Number: US-TAIHO ONCOLOGY INC-EU-2021-00007

PATIENT
  Age: 69 Year
  Sex: Male
  Weight: 53.2 kg

DRUGS (16)
  1. LONSURF [Suspect]
     Active Substance: TIPIRACIL HYDROCHLORIDE\TRIFLURIDINE
     Indication: Colon cancer stage IV
     Dosage: CYCLE 1
     Route: 048
     Dates: start: 20201203, end: 20210420
  2. AVASTIN [Suspect]
     Active Substance: BEVACIZUMAB
     Indication: Product used for unknown indication
     Dosage: CYCLE-2
  3. ATENOLOL [Concomitant]
     Active Substance: ATENOLOL
     Route: 048
  4. BENZONATATE [Concomitant]
     Active Substance: BENZONATATE
     Route: 048
  5. CLINDAMYCIN [Concomitant]
     Active Substance: CLINDAMYCIN
  6. DRONABINOL [Concomitant]
     Active Substance: DRONABINOL
     Route: 048
  7. XARELTO [Concomitant]
     Active Substance: RIVAROXABAN
     Route: 048
  8. LIDOCAINE- PRILOCAINE [Concomitant]
     Route: 061
  9. HYD POL/CPM [Concomitant]
  10. LORAZEPAM [Concomitant]
     Active Substance: LORAZEPAM
  11. BUPROPION HYDROCHLORIDE [Concomitant]
     Active Substance: BUPROPION HYDROCHLORIDE
  12. PEGFILGRASTIM [Concomitant]
     Active Substance: PEGFILGRASTIM
     Dosage: 48 HOURS ONCE
  13. MARINOL [Concomitant]
     Active Substance: DRONABINOL
  14. NEULASTA [Concomitant]
     Active Substance: PEGFILGRASTIM
     Dosage: 24-48 HOURS
  15. RESTORIL [Concomitant]
     Active Substance: TEMAZEPAM
     Dosage: AS REQUIRED
     Route: 048
  16. XARELTO [Concomitant]
     Active Substance: RIVAROXABAN
     Route: 048

REACTIONS (24)
  - Disease progression [Fatal]
  - Dyspnoea [Unknown]
  - Hypotension [Recovering/Resolving]
  - Neuropathy peripheral [Unknown]
  - Inguinal hernia [Unknown]
  - Deep vein thrombosis [Unknown]
  - Anxiety [Unknown]
  - Gout [Unknown]
  - Weight decreased [Unknown]
  - Ascites [Not Recovered/Not Resolved]
  - Insomnia [Unknown]
  - Arthralgia [Unknown]
  - Localised infection [Unknown]
  - Blood bilirubin increased [Unknown]
  - Decreased appetite [Not Recovered/Not Resolved]
  - Body temperature increased [Unknown]
  - Diarrhoea [Not Recovered/Not Resolved]
  - Cough [Unknown]
  - Anaemia [Unknown]
  - Thrombocytopenia [Unknown]
  - Thrombocytosis [Unknown]
  - Nausea [Unknown]
  - Fatigue [Not Recovered/Not Resolved]
  - Asthenia [Unknown]

NARRATIVE: CASE EVENT DATE: 20201221
